FAERS Safety Report 7491002-X (Version None)
Quarter: 2011Q2

REPORT INFORMATION
  Report Type: 
  Country: None (occurrence: None)
  Receive Date: 20110519
  Receipt Date: 20110511
  Transmission Date: 20111010
  Serious: Yes (Other)
  Sender: FDA-Public Use
  Company Number: JP-ACTELION-A-CH2011-48582

PATIENT
  Age: 71 Year
  Sex: Female

DRUGS (5)
  1. SILDENAFIL CITRATE [Concomitant]
  2. LEVOTHYROXINE SODIUM [Concomitant]
  3. TRACLEER [Suspect]
     Dosage: 125 MG, BID
     Route: 048
     Dates: start: 20070307, end: 20110112
  4. TRACLEER [Suspect]
     Indication: PULMONARY HYPERTENSION
     Dosage: 125 MG, BID
     Route: 048
     Dates: start: 20110210, end: 20110218
  5. BERAPROST SODIUM [Concomitant]

REACTIONS (2)
  - AGRANULOCYTOSIS [None]
  - CARDIAC FAILURE [None]
